FAERS Safety Report 7279900-3 (Version None)
Quarter: 2011Q1

REPORT INFORMATION
  Report Type: 
  Country: None (occurrence: None)
  Receive Date: 20110208
  Receipt Date: 20100930
  Transmission Date: 20110831
  Serious: Yes (Hospitalization, Other)
  Sender: FDA-Public Use
  Company Number: US-BAYER-200942878NA

PATIENT
  Sex: Female
  Weight: 69 kg

DRUGS (17)
  1. LOVENOX [Concomitant]
  2. CELEBREX [Concomitant]
     Dosage: 200 MG, UNK
     Route: 048
     Dates: start: 20011128
  3. MERIDIA [Concomitant]
     Dosage: 15 MG, OM
     Route: 048
     Dates: start: 20030528
  4. ESGIC-PLUS [Concomitant]
     Dosage: UNK
     Dates: start: 20060919
  5. ZEBUTAL [Concomitant]
     Dosage: UNK
     Route: 048
     Dates: start: 20090919
  6. LEVAQUIN [Concomitant]
     Dosage: 500 MG, QD
     Route: 048
     Dates: start: 20061213
  7. UNCODEABLE ^UNCLASSIFIABLE^ [Concomitant]
     Dosage: UNK UNK, PRN
     Route: 048
     Dates: start: 20061213
  8. YAZ [Suspect]
     Indication: MIGRAINE
  9. UNCODEABLE ^UNCLASSIFIABLE^ [Concomitant]
     Dosage: UNK
     Dates: start: 20061130
  10. ORTHO TRI-CYCLEN LO [Concomitant]
     Dosage: UNK
     Dates: start: 20040413, end: 20060601
  11. ASPIRIN [Concomitant]
  12. ENALAPRIL MALEATE [Concomitant]
     Dosage: 1.25 NOT APPL., PRN
     Route: 042
     Dates: start: 20061206
  13. HEPARIN [Concomitant]
     Dosage: UNK UNK, QID
     Route: 042
     Dates: start: 20061206
  14. YAZ [Suspect]
     Indication: ORAL CONTRACEPTION
     Dosage: UNK
     Route: 048
     Dates: start: 20060601, end: 20061129
  15. MORPHINE [Concomitant]
     Indication: PAIN
     Dates: start: 20061205
  16. MEDROXYPROGESTERONE [Concomitant]
     Dosage: UNK
  17. FLEXERIL [Concomitant]
     Dosage: UNK UNK, QD
     Dates: start: 20060908, end: 20060915

REACTIONS (11)
  - LYMPHADENOPATHY [None]
  - CHEST PAIN [None]
  - THROMBOSIS [None]
  - PULMONARY MASS [None]
  - COUGH [None]
  - DYSPNOEA [None]
  - DEEP VEIN THROMBOSIS [None]
  - OEDEMA PERIPHERAL [None]
  - PULMONARY EMBOLISM [None]
  - PNEUMONIA [None]
  - PLANTAR FASCIITIS [None]
